FAERS Safety Report 6407687-2 (Version None)
Quarter: 2009Q4

REPORT INFORMATION
  Report Type: 
  Country: None (occurrence: None)
  Receive Date: 20091015
  Receipt Date: 20091002
  Transmission Date: 20100525
  Serious: Yes (Other)
  Sender: FDA-Public Use
  Company Number: TPH-00224

PATIENT
  Age: 28 Year
  Sex: Female

DRUGS (1)
  1. TRIQUILAR [Suspect]
     Indication: DRUG USE FOR UNKNOWN INDICATION
     Dosage: NI; ORAL
     Route: 048
     Dates: start: 20061001, end: 20080801

REACTIONS (2)
  - OCULOMUCOCUTANEOUS SYNDROME [None]
  - STEVENS-JOHNSON SYNDROME [None]
